FAERS Safety Report 5024108-5 (Version None)
Quarter: 2006Q2

REPORT INFORMATION
  Report Type: 
  Country: None (occurrence: None)
  Receive Date: 20060607
  Receipt Date: 20060526
  Transmission Date: 20061013
  Serious: Yes (Hospitalization)
  Sender: FDA-Public Use
  Company Number: 2006BI006565

PATIENT
  Age: 58 Year
  Sex: Male

DRUGS (1)
  1. AVONEX [Suspect]
     Indication: RELAPSING-REMITTING MULTIPLE SCLEROSIS
     Dosage: 30 UG; QW; IM
     Route: 030
     Dates: start: 20030609, end: 20060521

REACTIONS (5)
  - ANKLE FRACTURE [None]
  - BLOOD ELECTROLYTES DECREASED [None]
  - CELLULITIS [None]
  - FALL [None]
  - HERNIA REPAIR [None]
